FAERS Safety Report 15390498 (Version 1)
Quarter: 2018Q3

REPORT INFORMATION
  Report Type: Spontaneous
  Country: US (occurrence: US)
  Receive Date: 20180909
  Receipt Date: 20180909
  Transmission Date: 20181010
  Serious: No
  Sender: FDA-Public Use
  Company Number: None

PATIENT
  Age: 75 Year
  Sex: Male

DRUGS (7)
  1. VALSARTAN. [Suspect]
     Active Substance: VALSARTAN
     Indication: HYPERTENSION
     Route: 048
     Dates: start: 20180904, end: 20180909
  2. FUROSEMIDE. [Concomitant]
     Active Substance: FUROSEMIDE
  3. DOFETILIDE. [Concomitant]
     Active Substance: DOFETILIDE
  4. DILTIAZEM XT [Concomitant]
  5. AMLODIPINE [Concomitant]
     Active Substance: AMLODIPINE BESYLATE
  6. PRAZOSIN. [Concomitant]
     Active Substance: PRAZOSIN
  7. VIAGRA [Concomitant]
     Active Substance: SILDENAFIL CITRATE

REACTIONS (3)
  - Product formulation issue [None]
  - Malaise [None]
  - Muscle spasms [None]

NARRATIVE: CASE EVENT DATE: 20180909
